FAERS Safety Report 8935633 (Version 1)
Quarter: 2012Q4

REPORT INFORMATION
  Report Type: 
  Country: DE (occurrence: DE)
  Receive Date: 20121130
  Receipt Date: 20121130
  Transmission Date: 20130627
  Serious: Yes (Other)
  Sender: FDA-Public Use
  Company Number: GXKR2012DE003351

PATIENT
  Age: 19 Year
  Sex: Male
  Weight: 40 kg

DRUGS (15)
  1. CEFTAZIDIM HEXAL [Suspect]
     Indication: CYSTIC FIBROSIS
     Dosage: 3 g, BID
     Route: 042
     Dates: start: 20121022, end: 20121106
  2. TOBRAMYCIN [Suspect]
     Indication: CYSTIC FIBROSIS
     Dosage: 480 mg, UNK
     Route: 042
     Dates: start: 20121022, end: 20121106
  3. ZITHROMAX [Concomitant]
     Dosage: 250 mg, QW31D
     Route: 048
  4. VIGANTOLETTEN [Concomitant]
     Dosage: 1000 IU, QD
     Route: 048
  5. MULTI-VIT [Concomitant]
     Dosage: 200 IU, QD
     Route: 048
  6. URSOFALK [Concomitant]
     Dosage: 250 mg, BID
     Route: 048
  7. PANZYTRAT [Concomitant]
     Dosage: 10.000 and 25.000 meal and fat adapted
  8. KANAVIT [Concomitant]
     Dosage: 1 DF, QW
     Route: 048
  9. FERRO SANOL//FERROUS GLUCONATE [Concomitant]
     Dosage: 1 DF, UNK
     Route: 048
  10. SINGULAIR [Concomitant]
     Dosage: 10 mg, QD
     Route: 048
  11. COLISTIN [Concomitant]
     Dosage: 1 UNK, BID
  12. PULMICORT [Concomitant]
     Dosage: 0.5 mg, BID
  13. ATROVENT [Concomitant]
  14. SALBUTAMOL [Concomitant]
  15. LIPROLOG [Concomitant]

REACTIONS (3)
  - Transaminases increased [Recovered/Resolved]
  - Pruritus [Unknown]
  - Paraesthesia [Unknown]
